FAERS Safety Report 5402441-2 (Version None)
Quarter: 2007Q3

REPORT INFORMATION
  Report Type: 
  Country: None (occurrence: None)
  Receive Date: 20070801
  Receipt Date: 20060630
  Transmission Date: 20080115
  Serious: No
  Sender: FDA-Public Use
  Company Number: A0604306A

PATIENT
  Age: 60 Year
  Sex: Female
  Weight: 71.8 kg

DRUGS (7)
  1. IMITREX [Suspect]
     Route: 048
  2. CEPHALEXIN [Concomitant]
     Indication: CELLULITIS
     Dosage: 500MG THREE TIMES PER DAY
     Route: 048
     Dates: start: 20060427, end: 20060429
  3. TRIAMCINOLONE [Concomitant]
     Indication: DERMATITIS
     Dosage: .12PCT TWICE PER DAY
     Route: 061
     Dates: start: 20060427, end: 20060429
  4. VALTREX [Concomitant]
     Dosage: 1G THREE TIMES PER DAY
     Route: 048
     Dates: start: 20060429
  5. VICODIN [Concomitant]
     Indication: POST HERPETIC NEURALGIA
     Dosage: 1TAB FOUR TIMES PER DAY
     Route: 048
     Dates: start: 20060429
  6. ULTRAM [Concomitant]
     Dosage: 50MG AS REQUIRED
     Route: 048
     Dates: start: 20060503
  7. LYRICA [Concomitant]
     Dosage: 50MG THREE TIMES PER DAY
     Route: 048
     Dates: start: 20060503

REACTIONS (1)
  - THERAPEUTIC RESPONSE UNEXPECTED [None]
